FAERS Safety Report 7416009-X (Version None)
Quarter: 2011Q2

REPORT INFORMATION
  Report Type: 
  Country: None (occurrence: None)
  Receive Date: 20110414
  Receipt Date: 20110331
  Transmission Date: 20111010
  Serious: Yes (Hospitalization)
  Sender: FDA-Public Use
  Company Number: JP-JNJFOC-20110301706

PATIENT
  Sex: Female
  Weight: 42 kg

DRUGS (13)
  1. RHEUMATREX [Suspect]
     Indication: RHEUMATOID ARTHRITIS
     Route: 048
  2. ARTIST [Concomitant]
     Indication: HYPERTENSION
     Route: 048
  3. REMICADE [Suspect]
     Route: 042
  4. NORVASC [Concomitant]
     Indication: HYPERTENSION
     Route: 048
  5. REMICADE [Suspect]
     Indication: RHEUMATOID ARTHRITIS
     Route: 042
  6. AZULFIDINE [Concomitant]
     Indication: RHEUMATOID ARTHRITIS
     Route: 048
  7. TAKEPRON [Concomitant]
     Indication: REFLUX OESOPHAGITIS
     Route: 048
  8. RIMATIL [Concomitant]
     Indication: RHEUMATOID ARTHRITIS
     Route: 048
  9. PLETAL [Concomitant]
     Indication: CEREBRAL INFARCTION
     Route: 048
  10. PREDNISOLONE [Suspect]
     Indication: RHEUMATOID ARTHRITIS
     Route: 048
  11. METHOTREXATE [Concomitant]
     Route: 048
  12. ACTONEL [Concomitant]
     Indication: OSTEOPOROSIS
     Route: 048
  13. REMICADE [Suspect]
     Route: 042

REACTIONS (2)
  - DEHYDRATION [None]
  - DISSEMINATED TUBERCULOSIS [None]
